FAERS Safety Report 7765455-3 (Version None)
Quarter: 2011Q3

REPORT INFORMATION
  Report Type: 
  Country: None (occurrence: None)
  Receive Date: 20110921
  Receipt Date: 20110915
  Transmission Date: 20111222
  Serious: Yes (Death)
  Sender: FDA-Public Use
  Company Number: JP-PFIZER INC-2011202149

PATIENT
  Age: 23 Year
  Sex: Female
  Weight: 71.3 kg

DRUGS (8)
  1. CLARITHROMYCIN [Concomitant]
     Dosage: UNK
     Route: 048
  2. HOKUNALIN [Concomitant]
     Dosage: UNK
     Route: 048
  3. SILDENAFIL CITRATE [Suspect]
     Dosage: 60 MG, DAILY
     Dates: start: 20101012
  4. AMPICILLIN SODIUM/SULBACTAM SODIUM [Concomitant]
     Dosage: UNK
     Route: 042
     Dates: start: 20110128, end: 20110206
  5. AMOXICILLIN [Concomitant]
     Dosage: UNK
     Route: 048
     Dates: start: 20110204, end: 20110210
  6. SILDENAFIL CITRATE [Suspect]
     Dosage: 20 MG, DAILY
     Route: 048
     Dates: start: 20100817, end: 20100913
  7. SILDENAFIL CITRATE [Suspect]
     Dosage: 40 MG, DAILY
     Dates: start: 20100914, end: 20101011
  8. TRACLEER [Concomitant]
     Indication: PULMONARY HYPERTENSION
     Dosage: UNK
     Route: 048

REACTIONS (1)
  - SUDDEN CARDIAC DEATH [None]
